FAERS Safety Report 4414748-6 (Version None)
Quarter: 2004Q3

REPORT INFORMATION
  Report Type: 
  Country: None (occurrence: None)
  Receive Date: 20040804
  Receipt Date: 20030818
  Transmission Date: 20050211
  Serious: Yes (Other)
  Sender: FDA-Public Use
  Company Number: US-BRISTOL-MYERS SQUIBB COMPANY-12357968

PATIENT
  Age: 38 Year
  Sex: Male
  Weight: 136 kg

DRUGS (1)
  1. GLUCOVANCE [Suspect]
     Indication: DIABETES MELLITUS
     Route: 048

REACTIONS (3)
  - BLOOD GLUCOSE INCREASED [None]
  - GENITAL RASH [None]
  - PENILE SWELLING [None]
